FAERS Safety Report 14841660 (Version 1)
Quarter: 2018Q2

REPORT INFORMATION
  Report Type: Spontaneous
  Country: US (occurrence: US)
  Receive Date: 20180418
  Receipt Date: 20180418
  Transmission Date: 20180711
  Serious: Yes (Disabling)
  Sender: FDA-Public Use
  Company Number: None

PATIENT
  Age: 81 Year
  Sex: Female
  Weight: 86.18 kg

DRUGS (25)
  1. COSIMIN DS [Concomitant]
  2. ROSUVASTATIN CALCIUM. [Concomitant]
     Active Substance: ROSUVASTATIN CALCIUM
  3. METFORMIN [Concomitant]
     Active Substance: METFORMIN HYDROCHLORIDE
  4. FISH OIL [Concomitant]
     Active Substance: FISH OIL
  5. CRANBERRY. [Concomitant]
     Active Substance: CRANBERRY
  6. BILBERRY ACIDOPHILUS (PROBIOTIC) [Concomitant]
  7. VITAMIN B12 [Concomitant]
     Active Substance: CYANOCOBALAMIN
  8. CINNAMON. [Concomitant]
     Active Substance: CINNAMON
  9. VITAMIN D [Concomitant]
     Active Substance: CHOLECALCIFEROL
  10. MAGNESIUM [Concomitant]
     Active Substance: MAGNESIUM
  11. C SOFT GEL [Concomitant]
  12. BLACK COHOSH [Concomitant]
     Active Substance: BLACK COHOSH
  13. OMEPRAZOLE. [Concomitant]
     Active Substance: OMEPRAZOLE
  14. MILK THISTLE [Concomitant]
     Active Substance: DIETARY SUPPLEMENT\HERBALS\MILK THISTLE
  15. ASPIRIN 81MG [Concomitant]
     Active Substance: ASPIRIN
  16. TEA [Concomitant]
     Active Substance: TEA LEAF
  17. SYNTHROID [Concomitant]
     Active Substance: LEVOTHYROXINE SODIUM
  18. GABAPENTINE [Concomitant]
     Active Substance: GABAPENTIN
  19. GLIMEPIRIDE. [Concomitant]
     Active Substance: GLIMEPIRIDE
  20. VALSARTAN (160-12.5 MG) [Suspect]
     Active Substance: VALSARTAN
     Indication: HYPERTENSION
     Dosage: ?          QUANTITY:1 DF DOSAGE FORM;?
     Route: 048
     Dates: start: 20171125, end: 20180313
  21. BYSTOLIC [Concomitant]
     Active Substance: NEBIVOLOL HYDROCHLORIDE
  22. HYDROCHLOROTHIAZIDE. [Concomitant]
     Active Substance: HYDROCHLOROTHIAZIDE
  23. OCCUVITE ANTI-OXIDANT [Concomitant]
  24. SELENIUM [Concomitant]
     Active Substance: SELENIUM
  25. BEE POLLEN [Concomitant]
     Active Substance: BEE POLLEN

REACTIONS (3)
  - Cough [None]
  - Retching [None]
  - Productive cough [None]

NARRATIVE: CASE EVENT DATE: 20171125
